FAERS Safety Report 15276472 (Version 4)
Quarter: 2018Q4

REPORT INFORMATION
  Report Type: Report from Study
  Country: BR (occurrence: BR)
  Receive Date: 20180814
  Receipt Date: 20181218
  Transmission Date: 20190204
  Serious: Yes (Hospitalization)
  Sender: FDA-Public Use
  Company Number: PHHY2018BR071951

PATIENT
  Sex: Male
  Weight: 92 kg

DRUGS (2)
  1. COSENTYX [Suspect]
     Active Substance: SECUKINUMAB
     Dosage: UNK
     Route: 058
     Dates: start: 20180715, end: 201807
  2. COSENTYX [Suspect]
     Active Substance: SECUKINUMAB
     Indication: ANKYLOSING SPONDYLITIS
     Dosage: 150 MG, QMO
     Route: 058
     Dates: start: 20180518

REACTIONS (10)
  - Blood glucose increased [Recovered/Resolved]
  - Concomitant disease aggravated [Not Recovered/Not Resolved]
  - Visual impairment [Not Recovered/Not Resolved]
  - Limb injury [Recovered/Resolved]
  - Skin lesion [Recovering/Resolving]
  - Macule [Not Recovered/Not Resolved]
  - Decreased immune responsiveness [Not Recovered/Not Resolved]
  - Skin wound [Recovered/Resolved]
  - Skin reaction [Recovering/Resolving]
  - Drug ineffective [Not Recovered/Not Resolved]
